FAERS Safety Report 12117509 (Version 1)
Quarter: 2016Q1

REPORT INFORMATION
  Report Type: Spontaneous
  Country: MX (occurrence: MX)
  Receive Date: 20160225
  Receipt Date: 20160225
  Transmission Date: 20160526
  Serious: Yes (Other)
  Sender: FDA-Public Use
  Company Number: MX-ROCHE-1716580

PATIENT
  Age: 43 Year
  Sex: Female
  Weight: 60 kg

DRUGS (3)
  1. DICLOFENAC [Concomitant]
     Active Substance: DICLOFENAC
     Indication: INFLUENZA
     Dosage: SINGLE DOSE
     Route: 048
     Dates: start: 20160220
  2. METAMIZOLE [Concomitant]
     Active Substance: METAMIZOLE
     Indication: INFLUENZA
     Route: 048
     Dates: start: 20160220, end: 20160221
  3. TAMIFLU [Suspect]
     Active Substance: OSELTAMIVIR PHOSPHATE
     Indication: INFLUENZA
     Route: 048
     Dates: start: 20160220, end: 20160223

REACTIONS (11)
  - Dyspnoea [Recovering/Resolving]
  - Abdominal pain upper [Recovering/Resolving]
  - Muscle spasms [Not Recovered/Not Resolved]
  - Confusional state [Recovered/Resolved]
  - Pyrexia [Recovered/Resolved]
  - Tremor [Not Recovered/Not Resolved]
  - Insomnia [Not Recovered/Not Resolved]
  - Vomiting [Recovering/Resolving]
  - Malaise [Recovering/Resolving]
  - Nausea [Recovering/Resolving]
  - Dysarthria [Unknown]

NARRATIVE: CASE EVENT DATE: 20160220
